FAERS Safety Report 7296094-9 (Version None)
Quarter: 2011Q1

REPORT INFORMATION
  Report Type: 
  Country: None (occurrence: None)
  Receive Date: 20110216
  Receipt Date: 20101206
  Transmission Date: 20110831
  Serious: No
  Sender: FDA-Public Use
  Company Number: US-ABBOTT-10P-163-0689713-00

PATIENT
  Sex: Male
  Weight: 74.91 kg

DRUGS (2)
  1. SIMCOR [Suspect]
     Indication: DYSLIPIDAEMIA
     Dates: start: 20101203
  2. DIOVAN [Concomitant]
     Indication: PRODUCT USED FOR UNKNOWN INDICATION
     Route: 048

REACTIONS (1)
  - ERYTHEMA [None]
